FAERS Safety Report 8286529-7 (Version None)
Quarter: 2012Q2

REPORT INFORMATION
  Report Type: 
  Country: None (occurrence: None)
  Receive Date: 20120411
  Receipt Date: 20120330
  Transmission Date: 20120825
  Serious: Yes (Hospitalization, Other)
  Sender: FDA-Public Use
  Company Number: GGEL20120400440

PATIENT
  Age: 18 Year
  Sex: Female

DRUGS (1)
  1. METFORMIN HCL [Suspect]

REACTIONS (10)
  - HYPOGLYCAEMIC SEIZURE [None]
  - HYPOGLYCAEMIA [None]
  - ABDOMINAL PAIN UPPER [None]
  - RENAL FAILURE ACUTE [None]
  - OVERDOSE [None]
  - METABOLIC ACIDOSIS [None]
  - POTENTIATING DRUG INTERACTION [None]
  - VOMITING [None]
  - BLOOD LACTIC ACID INCREASED [None]
  - HAEMODIALYSIS [None]
